FAERS Safety Report 14137620 (Version 2)
Quarter: 2017Q4

REPORT INFORMATION
  Report Type: Report from Study
  Country: US (occurrence: US)
  Receive Date: 20171027
  Receipt Date: 20171102
  Transmission Date: 20180321
  Serious: Yes (Death, Hospitalization, Other)
  Sender: FDA-Public Use
  Company Number: US-JNJFOC-20170710222

PATIENT
  Age: 61 Year
  Sex: Female

DRUGS (10)
  1. IMBRUVICA [Suspect]
     Active Substance: IBRUTINIB
     Indication: GRAFT VERSUS HOST DISEASE
     Route: 048
     Dates: start: 20170403
  2. AZACITIDINE. [Concomitant]
     Active Substance: AZACITIDINE
     Dates: start: 20170630
  3. IMBRUVICA [Suspect]
     Active Substance: IBRUTINIB
     Indication: GRAFT VERSUS HOST DISEASE
     Route: 048
     Dates: start: 20170614
  4. AZACITIDINE. [Concomitant]
     Active Substance: AZACITIDINE
     Dates: start: 20170519, end: 20170608
  5. TACROLIMUS. [Concomitant]
     Active Substance: TACROLIMUS
     Dates: start: 20170619, end: 20170621
  6. PREDNISONE. [Concomitant]
     Active Substance: PREDNISONE
     Dates: start: 20170620, end: 20170626
  7. TACROLIMUS. [Concomitant]
     Active Substance: TACROLIMUS
     Dosage: 1/0.5 MG, BID
     Dates: start: 20170622, end: 20170623
  8. PREDNISONE. [Concomitant]
     Active Substance: PREDNISONE
     Dosage: 15-10MG, UNK
     Dates: start: 20170608
  9. CLOBETASOL [Concomitant]
     Active Substance: CLOBETASOL
     Route: 061
  10. TACROLIMUS. [Concomitant]
     Active Substance: TACROLIMUS
     Dates: start: 20170623, end: 20170626

REACTIONS (19)
  - Immunodeficiency [Unknown]
  - Septic embolus [Unknown]
  - Acute myeloid leukaemia [Fatal]
  - Procedural hypotension [Unknown]
  - Pulmonary embolism [Unknown]
  - Procedural haemorrhage [Unknown]
  - Oesophagitis [Unknown]
  - Mucormycosis [Unknown]
  - Oesophageal dilatation [Unknown]
  - Mucosal inflammation [Unknown]
  - Off label use [Unknown]
  - Malnutrition [Unknown]
  - Fusobacterium infection [Unknown]
  - Bacteraemia [Unknown]
  - Subdural haematoma [Unknown]
  - Septic shock [Unknown]
  - Fungal sepsis [Unknown]
  - Product use in unapproved indication [Unknown]
  - Sinusitis fungal [Fatal]

NARRATIVE: CASE EVENT DATE: 20170403
